FAERS Safety Report 8062526-1 (Version None)
Quarter: 2012Q1

REPORT INFORMATION
  Report Type: 
  Country: None (occurrence: None)
  Receive Date: 20120117
  Receipt Date: 20120109
  Transmission Date: 20120608
  Serious: Yes (Disabling, Other)
  Sender: FDA-Public Use
  Company Number: 2011SP049974

PATIENT
  Sex: Female

DRUGS (4)
  1. INTRON A [Suspect]
     Indication: HEPATITIS C
     Dates: start: 20111010, end: 20111118
  2. INTRON A [Suspect]
     Indication: HEPATITIS C
     Dates: start: 19910101, end: 19910401
  3. PEG-INTRON [Suspect]
     Indication: HEPATITIS C
     Dates: start: 20111010, end: 20111118
  4. RIBAVIRIN [Suspect]
     Indication: HEPATITIS C
     Dates: start: 20111010, end: 20111118

REACTIONS (8)
  - DRUG INEFFECTIVE [None]
  - BLISTER [None]
  - CONDITION AGGRAVATED [None]
  - BIPOLAR I DISORDER [None]
  - MALAISE [None]
  - SUICIDAL IDEATION [None]
  - ASTHENIA [None]
  - DEHYDRATION [None]
